FAERS Safety Report 6372163-2 (Version None)
Quarter: 2009Q3

REPORT INFORMATION
  Report Type: 
  Country: None (occurrence: None)
  Receive Date: 20090917
  Receipt Date: 20090904
  Transmission Date: 20100115
  Serious: Yes (Other)
  Sender: FDA-Public Use
  Company Number: ADR15872009

PATIENT
  Age: 72 Year
  Sex: Male

DRUGS (4)
  1. CITALOPRAM HYDROBROMIDE [Suspect]
     Dosage: ORAL USE
     Route: 048
     Dates: start: 20080201, end: 20080313
  2. QUETIAPINE FUMARATE [Concomitant]
  3. EXELON [Concomitant]
  4. MADOPAR [Concomitant]

REACTIONS (1)
  - NEUROLEPTIC MALIGNANT SYNDROME [None]
